FAERS Safety Report 4314068-4 (Version None)
Quarter: 2004Q1

REPORT INFORMATION
  Report Type: 
  Country: None (occurrence: None)
  Receive Date: 20040308
  Receipt Date: 20040308
  Transmission Date: 20041129
  Serious: Yes (Other)
  Sender: FDA-Public Use
  Company Number: None

PATIENT
  Age: 40 Year
  Sex: Female
  Weight: 43.0917 kg

DRUGS (2)
  1. REBETRON [Suspect]
     Indication: HEPATITIS C
     Dosage: 3X WEEK SUBDERMAL
     Route: 059
     Dates: start: 19990301, end: 19990501
  2. REBETRON [Suspect]
     Indication: HEPATITIS CHRONIC ACTIVE
     Dosage: 3X WEEK SUBDERMAL
     Route: 059
     Dates: start: 19990301, end: 19990501

REACTIONS (6)
  - DEPRESSION [None]
  - INJECTION SITE PAIN [None]
  - NEUROPATHY PERIPHERAL [None]
  - PAIN [None]
  - THYROID DISORDER [None]
  - VASCULITIS [None]
